FAERS Safety Report 8246601-4 (Version None)
Quarter: 2012Q1

REPORT INFORMATION
  Report Type: 
  Country: None (occurrence: None)
  Receive Date: 20120330
  Receipt Date: 20120319
  Transmission Date: 20120608
  Serious: Yes (Other)
  Sender: FDA-Public Use
  Company Number: JP-PFIZER INC-2012079570

PATIENT
  Sex: Female

DRUGS (4)
  1. GASLON [Concomitant]
     Dosage: UNK
     Route: 048
     Dates: start: 20120130
  2. RABEPRAZOLE SODIUM [Concomitant]
     Dosage: UNK
     Route: 048
     Dates: start: 20120130
  3. CELEBREX [Suspect]
     Dosage: UNK
     Route: 048
     Dates: start: 20120130
  4. REBAMIPIDE [Concomitant]
     Dosage: UNK
     Route: 048
     Dates: start: 20120130

REACTIONS (1)
  - GLYCOSYLATED HAEMOGLOBIN INCREASED [None]
